FAERS Safety Report 9943345 (Version 1)
Quarter: 2014Q1

REPORT INFORMATION
  Report Type: Spontaneous
  Country: BR (occurrence: BR)
  Receive Date: 20140303
  Receipt Date: 20140303
  Transmission Date: 20141002
  Serious: Yes (Other)
  Sender: FDA-Public Use
  Company Number: BR-PFIZER INC-2014060022

PATIENT
  Sex: Male

DRUGS (1)
  1. DALACIN C [Suspect]
     Dosage: UNK
     Route: 048

REACTIONS (3)
  - Dementia [Unknown]
  - Dysphagia [Unknown]
  - Wrong technique in drug usage process [Unknown]
